FAERS Safety Report 4482030-7 (Version None)
Quarter: 2004Q3

REPORT INFORMATION
  Report Type: 
  Country: None (occurrence: None)
  Receive Date: 20040921
  Receipt Date: 20031113
  Transmission Date: 20050211
  Serious: Yes (Life-Threatening, Hospitalization, Other)
  Sender: FDA-Public Use
  Company Number: 163-20785-03070234

PATIENT
  Age: 54 Year
  Sex: Male
  Weight: 87.3 kg

DRUGS (15)
  1. THALOMID [Suspect]
     Indication: GLIOMA
     Dosage: 400 MG, QHS, ORAL; SEE IMAGE
     Route: 048
     Dates: start: 20030106, end: 20030603
  2. THALOMID [Suspect]
     Indication: GLIOMA
     Dosage: 400 MG, QHS, ORAL; SEE IMAGE
     Route: 048
     Dates: start: 20030611, end: 20030803
  3. THALOMID [Suspect]
     Indication: GLIOMA
     Dosage: 400 MG, QHS, ORAL; SEE IMAGE
     Route: 048
     Dates: start: 20030804, end: 20030921
  4. THALOMID [Suspect]
     Indication: GLIOMA
     Dosage: 400 MG, QHS, ORAL; SEE IMAGE
     Route: 048
     Dates: start: 20030922
  5. CELEBREX [Suspect]
     Indication: GLIOMA
     Dosage: 400 MG, BID, ORAL
     Route: 048
     Dates: start: 20030106
  6. ETOPOSIDE [Suspect]
     Indication: GLIOMA
     Dosage: 75 MG, X21D ALTERNATE
     Dates: end: 20031016
  7. CYCLOPHOSPHAMIDE [Suspect]
     Indication: GLIOMA
     Dosage: 100 MG. X21D ALTERNATING
     Dates: end: 20031027
  8. TEGRETOL [Concomitant]
  9. NEXIUM [Concomitant]
  10. COLACE (DOCSATE SODIUM) [Concomitant]
  11. NEURONTIN (GARBAPENTIN) [Concomitant]
  12. CELEXA [Concomitant]
  13. COUMADIN [Concomitant]
  14. CRESTOR [Concomitant]
  15. SENOKOT [Concomitant]

REACTIONS (14)
  - BLOOD CHOLESTEROL INCREASED [None]
  - BLOOD TRIGLYCERIDES INCREASED [None]
  - DIPLOPIA [None]
  - DYSPNOEA [None]
  - FATIGUE [None]
  - HEADACHE [None]
  - HYPOAESTHESIA [None]
  - LEUKOPENIA [None]
  - MUSCLE TIGHTNESS [None]
  - NEUTROPENIA [None]
  - PARAESTHESIA [None]
  - PHARYNGITIS [None]
  - PHARYNGOLARYNGEAL PAIN [None]
  - PULMONARY EMBOLISM [None]
